FAERS Safety Report 16159828 (Version 1)
Quarter: 2019Q2

REPORT INFORMATION
  Report Type: Spontaneous
  Country: NO (occurrence: NO)
  Receive Date: 20190404
  Receipt Date: 20190404
  Transmission Date: 20190711
  Serious: Yes (Death)
  Sender: FDA-Public Use
  Company Number: NO-JNJFOC-20190404656

PATIENT
  Age: 58 Year
  Sex: Female

DRUGS (4)
  1. AKINETON [Concomitant]
     Active Substance: BIPERIDEN HYDROCHLORIDE
     Indication: EXTRAPYRAMIDAL DISORDER
     Route: 048
     Dates: start: 2008, end: 20190224
  2. ERYTHROMYCIN. [Concomitant]
     Active Substance: ERYTHROMYCIN
     Indication: RESPIRATORY TRACT INFECTION
     Dosage: MAXIMUM 3 TABLETS PER DAY
     Route: 048
     Dates: start: 20190221, end: 20190224
  3. RISPERDAL CONSTA [Suspect]
     Active Substance: RISPERIDONE
     Indication: SCHIZOPHRENIA
     Route: 030
     Dates: start: 2008, end: 20190224
  4. VIVAL [Concomitant]
     Active Substance: DIAZEPAM
     Indication: ANXIETY
     Dosage: MAXIMUM 3 TABLETS PER DAY
     Route: 048
     Dates: start: 2008, end: 20190224

REACTIONS (1)
  - Sudden death [Fatal]
